FAERS Safety Report 7309879-7 (Version None)
Quarter: 2011Q1

REPORT INFORMATION
  Report Type: 
  Country: None (occurrence: None)
  Receive Date: 20110224
  Receipt Date: 20091109
  Transmission Date: 20110831
  Serious: No
  Sender: FDA-Public Use
  Company Number: 2009BI036732

PATIENT
  Age: 58 Year
  Sex: Female

DRUGS (1)
  1. TYSABRI [Suspect]
     Indication: MULTIPLE SCLEROSIS
     Route: 042
     Dates: start: 20090105

REACTIONS (5)
  - TOOTH FRACTURE [None]
  - COORDINATION ABNORMAL [None]
  - MUSCULAR WEAKNESS [None]
  - GAIT DISTURBANCE [None]
  - LOSS OF CONTROL OF LEGS [None]
